FAERS Safety Report 17326633 (Version 12)
Quarter: 2021Q3

REPORT INFORMATION
  Report Type: Report from Study
  Country: GB (occurrence: GB)
  Receive Date: 20200127
  Receipt Date: 20210916
  Transmission Date: 20211014
  Serious: Yes (Hospitalization, Disabling, Other)
  Sender: FDA-Public Use
  Company Number: GB-MYLANLABS-2020M1008001

PATIENT
  Age: 8 Year
  Sex: Female
  Weight: 23.3 kg

DRUGS (43)
  1. EVEROLIMUS. [Suspect]
     Active Substance: EVEROLIMUS
     Indication: BRAIN STEM GLIOMA
     Dosage: 5MG (START DATE?17?JUL?2019) MON, WED,FRIDAY,2.5MG MON TUES, THU, SAT, SUN QD
     Route: 048
     Dates: end: 20191014
  2. LOPERAMIDE [Suspect]
     Active Substance: LOPERAMIDE
     Indication: DIARRHOEA
     Dosage: 2 MILLIGRAM, Q6H (2 MG ONE CAPSULE UP TO FOUR TIMES A DAY)
     Route: 065
  3. DEXAMETHASONE. [Suspect]
     Active Substance: DEXAMETHASONE
     Dosage: 3.5 MILLIGRAM, BID
     Route: 048
     Dates: start: 20200210
  4. DEXAMETHASONE. [Suspect]
     Active Substance: DEXAMETHASONE
     Dosage: 1.6 MILLIGRAM, QD
     Route: 048
     Dates: start: 20200215, end: 20200221
  5. VANDETANIB. [Suspect]
     Active Substance: VANDETANIB
     Dosage: 100 MILLIGRAM, QOD
     Route: 048
     Dates: start: 20200212, end: 20200302
  6. VANDETANIB. [Suspect]
     Active Substance: VANDETANIB
     Dosage: 100 MILLIGRAM, QOD ,(65MG/M2)
     Route: 048
     Dates: start: 20191018, end: 20200207
  7. COTRIMOXAZOLE [Concomitant]
     Active Substance: SULFAMETHOXAZOLE\TRIMETHOPRIM
     Dosage: 720 MG, QD (360 MG BID (7.5 ML) ON SAT AND SUNDAYS)
     Route: 065
  8. RANITIDINE. [Concomitant]
     Active Substance: RANITIDINE
     Dosage: 50 MILLIGRAM, BID
     Route: 065
  9. EVEROLIMUS. [Suspect]
     Active Substance: EVEROLIMUS
     Dosage: 5 MILLIGRAM, QD (MON,WED,FRI)
     Route: 048
     Dates: start: 20210207
  10. VANDETANIB. [Suspect]
     Active Substance: VANDETANIB
     Dosage: 65 MILLIGRAM/SQ. METER, QD
     Route: 048
     Dates: start: 20191009, end: 20191014
  11. VANDETANIB. [Suspect]
     Active Substance: VANDETANIB
     Dosage: 65 MILLIGRAM/SQ. METER, QD
     Route: 048
     Dates: start: 20200316, end: 20200420
  12. VANDETANIB. [Suspect]
     Active Substance: VANDETANIB
     Dosage: 65 MILLIGRAM/SQ. METER, QW 65 MG/M2, (QOW; 65ML/ML)
     Route: 048
     Dates: start: 20200316, end: 20200420
  13. DEXAMETHASONE. [Concomitant]
     Active Substance: DEXAMETHASONE
     Dosage: 4 MG, BID, WEANED TO 0.5 MG SECOND DAILY
     Route: 065
     Dates: start: 20191101, end: 20210221
  14. DEXAMETHASONE. [Suspect]
     Active Substance: DEXAMETHASONE
     Dosage: VARIABLE 4MG BD WEANED TO 0.5MG SECOND DAILY
     Dates: start: 20191101, end: 20200221
  15. PARACETAMOL [Suspect]
     Active Substance: ACETAMINOPHEN
     Indication: PRODUCT USED FOR UNKNOWN INDICATION
     Dosage: 1 DOSAGE FORM, QD
     Route: 048
  16. AFINITOR [Suspect]
     Active Substance: EVEROLIMUS
     Indication: BRAIN STEM GLIOMA
     Dosage: 17?JUL?2019?07?FEB?2020:5 MG, MONDAY/WEDNESDAY/FRIDAY AND 2.5 MG
     Route: 048
  17. COTRIMOXAZOLE [Concomitant]
     Active Substance: SULFAMETHOXAZOLE\TRIMETHOPRIM
     Indication: PRODUCT USED FOR UNKNOWN INDICATION
     Dosage: 360 MG BD ON SAT/SUN ONLY
     Route: 048
  18. EVEROLIMUS. [Suspect]
     Active Substance: EVEROLIMUS
     Dosage: 5 MG ON MONDAY, WEDNESDAY AND FRIDAY AND 2.5 MG
     Route: 048
     Dates: start: 20190717, end: 20191014
  19. LANSOPRAZOLE. [Suspect]
     Active Substance: LANSOPRAZOLE
     Indication: PRODUCT USED FOR UNKNOWN INDICATION
     Dosage: UNK
     Route: 065
  20. VANDETANIB. [Suspect]
     Active Substance: VANDETANIB
     Dosage: 65 MILLIGRAM/SQ. METER, QD
     Route: 065
     Dates: start: 20200316, end: 20200420
  21. AFINITOR [Suspect]
     Active Substance: EVEROLIMUS
     Dosage: 18?JUL?2019?07?FEB?2020:2.5 MG, 5 MG MONDAY/WEDNESDAY/FRIDAY
     Route: 048
  22. COTRIMOXAZOLE [Concomitant]
     Active Substance: SULFAMETHOXAZOLE\TRIMETHOPRIM
     Dosage: 360 MG BD ON SAT/SUN ONLY
     Route: 065
  23. RANITIDINE. [Suspect]
     Active Substance: RANITIDINE
     Indication: GASTROOESOPHAGEAL REFLUX DISEASE
     Dosage: UNK UNK, QD
     Route: 048
  24. RANITIDINE. [Suspect]
     Active Substance: RANITIDINE
     Dosage: 50 MILLIGRAM, BID
     Route: 065
     Dates: start: 20191018
  25. RANITIDINE. [Suspect]
     Active Substance: RANITIDINE
     Dosage: 50 MILLIGRAM, BID
     Route: 048
     Dates: start: 20191018
  26. DEXAMETHASONE. [Suspect]
     Active Substance: DEXAMETHASONE
     Dosage: 9.2 MILLIGRAM, QD  (4.6 MG)
     Route: 048
     Dates: start: 20200207, end: 20200221
  27. DEXAMETHASONE. [Concomitant]
     Active Substance: DEXAMETHASONE
     Indication: PRODUCT USED FOR UNKNOWN INDICATION
     Dosage: 0.5 MILLIGRAM (WEANED TO 0.5MG SECOND DAILY)STOP DATE: 21?FEB?2021
     Route: 065
  28. EVEROLIMUS. [Suspect]
     Active Substance: EVEROLIMUS
     Dosage: 2.5 MILLIGRAM, QD (TUESDAY, THURS, SAT, SUNDAY)
     Route: 048
     Dates: start: 20200212
  29. EVEROLIMUS. [Suspect]
     Active Substance: EVEROLIMUS
     Dosage: 2.5 MILLIGRAM, QD
     Route: 048
     Dates: start: 20210207
  30. EVEROLIMUS. [Suspect]
     Active Substance: EVEROLIMUS
     Dosage: 5 MILLIGRAM, QD (MON, WED, FRIDAY)
     Route: 048
     Dates: start: 20200212
  31. DEXAMETHASONE. [Suspect]
     Active Substance: DEXAMETHASONE
     Indication: PRODUCT USED FOR UNKNOWN INDICATION
     Dosage: UNK
     Route: 048
  32. VANDETANIB. [Suspect]
     Active Substance: VANDETANIB
     Dosage: 100 MILLIGRAM, QOD (54 MG/M2, QD)
     Route: 065
     Dates: start: 20200212, end: 20200302
  33. AFINITOR [Suspect]
     Active Substance: EVEROLIMUS
     Dosage: 13?FEB?2020: 2.5 MG, QD (2.5 MG, BID, 5 MG MONDAY/WEDNESDAY/FRIDAY)
     Route: 048
  34. EVEROLIMUS. [Suspect]
     Active Substance: EVEROLIMUS
     Dosage: 5 MG ON MONDAY, WEDNESDAY AND FRIDAY AND 2.5 MG ON TUESDAY
     Route: 048
     Dates: start: 20191018, end: 20200207
  35. RANITIDINE. [Suspect]
     Active Substance: RANITIDINE
     Dosage: UNK
     Route: 065
  36. DEXAMETHASONE. [Suspect]
     Active Substance: DEXAMETHASONE
     Dosage: 3.5 MILLIGRAM, QD
     Route: 048
     Dates: start: 20200212
  37. VANDETANIB. [Suspect]
     Active Substance: VANDETANIB
     Dosage: 100 MILLIGRAM, QOD ,(65MG/M2)
     Route: 048
     Dates: start: 20191008, end: 20200207
  38. VANDETANIB. [Suspect]
     Active Substance: VANDETANIB
     Dosage: 100 MILLIGRAM, QOD
     Route: 048
     Dates: start: 20191009, end: 20191014
  39. EVEROLIMUS. [Suspect]
     Active Substance: EVEROLIMUS
     Dosage: 5 MILLIGRAM MONDAY/WEDNESDAY/FRIDAY
     Route: 048
     Dates: start: 20200212
  40. EVEROLIMUS. [Suspect]
     Active Substance: EVEROLIMUS
     Dosage: 5 MILLIGRAM, QD( MON, WED, FRIDAY,2.5 MG ON TUE, THU, SAT,SUN)
     Route: 048
     Dates: start: 20191001
  41. DEXAMETHASONE. [Suspect]
     Active Substance: DEXAMETHASONE
     Dosage: UNK
     Route: 065
  42. VANDETANIB. [Suspect]
     Active Substance: VANDETANIB
     Indication: BRAIN STEM GLIOMA
     Dosage: 100 MG, QOD,(65MG/M2), STOP DATE:14?OCT?2019
     Route: 048
  43. AFINITOR [Suspect]
     Active Substance: EVEROLIMUS
     Dosage: 12?FEB?2020: 5 MG, QD (5 MG, 5 MG MONDAY/WEDNESDAY/FRIDAY)
     Route: 048

REACTIONS (28)
  - Myoclonus [Recovered/Resolved]
  - Blood cholesterol increased [Not Recovered/Not Resolved]
  - Hypertension [Not Recovered/Not Resolved]
  - Disease progression [Unknown]
  - Hypophagia [Not Recovered/Not Resolved]
  - Off label use [Unknown]
  - Electrocardiogram QT prolonged [Recovered/Resolved]
  - Ocular hyperaemia [Recovered/Resolved]
  - Reflux gastritis [Recovered/Resolved]
  - Gastrooesophageal reflux disease [Recovered/Resolved]
  - Facial paralysis [Not Recovered/Not Resolved]
  - Malignant neoplasm progression [Unknown]
  - Intentional product misuse [Unknown]
  - Hemiparesis [Recovered/Resolved]
  - Hypophosphataemia [Recovered/Resolved]
  - Brain stem glioma [Unknown]
  - Medication error [Unknown]
  - Product use in unapproved indication [Unknown]
  - Flatulence [Recovered/Resolved]
  - Abdominal distension [Recovered/Resolved]
  - Ataxia [Unknown]
  - Stomatitis [Recovered/Resolved]
  - Blood creatinine increased [Recovered/Resolved]
  - Blood triglycerides increased [Unknown]
  - Neutrophil count decreased [Recovered/Resolved]
  - White blood cell count decreased [Not Recovered/Not Resolved]
  - Alanine aminotransferase increased [Recovered/Resolved]
  - Lymphocyte count decreased [Not Recovered/Not Resolved]

NARRATIVE: CASE EVENT DATE: 20190111
